FAERS Safety Report 16843724 (Version 1)
Quarter: 2019Q3

REPORT INFORMATION
  Report Type: Spontaneous
  Country: US (occurrence: US)
  Receive Date: 20190924
  Receipt Date: 20190924
  Transmission Date: 20191005
  Serious: Yes (Other)
  Sender: FDA-Public Use
  Company Number: US-AKORN PHARMACEUTICALS-2019AKN01900

PATIENT
  Age: 19 Year
  Sex: Female
  Weight: 47.62 kg

DRUGS (1)
  1. MYORISAN [Suspect]
     Active Substance: ISOTRETINOIN
     Indication: ACNE
     Dosage: 40 MG, 1X/DAY WITH LARGEST MEAL
     Route: 048
     Dates: start: 20190315, end: 20190828

REACTIONS (6)
  - Depression [Recovered/Resolved]
  - Inappropriate affect [Recovered/Resolved]
  - Mood altered [Recovered/Resolved]
  - Back pain [Recovered/Resolved]
  - Off label use [Recovered/Resolved]
  - Headache [Recovered/Resolved]

NARRATIVE: CASE EVENT DATE: 2019
